FAERS Safety Report 13811216 (Version 1)
Quarter: 2017Q3

REPORT INFORMATION
  Report Type: Spontaneous
  Country: US (occurrence: US)
  Receive Date: 20170728
  Receipt Date: 20170728
  Transmission Date: 20171127
  Serious: No
  Sender: FDA-Public Use
  Company Number: US-ROCHE-1158690

PATIENT
  Sex: Female

DRUGS (1)
  1. BONIVA [Suspect]
     Active Substance: IBANDRONATE SODIUM
     Indication: OSTEOPENIA
     Dosage: WITH THE THERAPY SINCE FROM 2-3 YEARS
     Route: 042
     Dates: end: 20121116

REACTIONS (3)
  - Infusion site reaction [Unknown]
  - Pain [Unknown]
  - Extravasation [Not Recovered/Not Resolved]
